FAERS Safety Report 5376531-7 (Version None)
Quarter: 2007Q3

REPORT INFORMATION
  Report Type: 
  Country: None (occurrence: None)
  Receive Date: 20070702
  Receipt Date: 20070619
  Transmission Date: 20080115
  Serious: Yes (Other)
  Sender: FDA-Public Use
  Company Number: US-SHR-US-2007-023002

PATIENT
  Age: 44 Year
  Sex: Female

DRUGS (1)
  1. BETASERON [Suspect]
     Indication: RELAPSING-REMITTING MULTIPLE SCLEROSIS
     Dosage: 3 MIU, UNK
     Route: 058
     Dates: start: 20070507

REACTIONS (4)
  - DYSPNOEA [None]
  - INCREASED UPPER AIRWAY SECRETION [None]
  - MYASTHENIA GRAVIS [None]
  - RALES [None]
